FAERS Safety Report 7503718-7 (Version None)
Quarter: 2011Q2

REPORT INFORMATION
  Report Type: 
  Country: None (occurrence: None)
  Receive Date: 20110518
  Receipt Date: 20110505
  Transmission Date: 20111010
  Serious: Yes (Other)
  Sender: FDA-Public Use
  Company Number: GB-1186135

PATIENT
  Age: 62 Year
  Sex: Male

DRUGS (6)
  1. GATIFLOXACIN [Concomitant]
  2. TOBRAMYCIN [Suspect]
     Dosage: OPHTHALMIC
     Route: 047
  3. DEXAMETHASONE SODIUM PHOSPHATE [Suspect]
     Dosage: OPHTHALMIC
     Route: 047
  4. TAMSULOSIN HCL [Suspect]
     Dosage: OPHTHALMIC
     Route: 047
  5. CYCLOPENTOLATE HCL [Suspect]
     Dosage: OPHTHALMIC
     Route: 047
  6. HOMATROPINE [Concomitant]

REACTIONS (6)
  - VOMITING [None]
  - VISUAL ACUITY REDUCED [None]
  - INTRAOCULAR PRESSURE INCREASED [None]
  - CORNEAL OPACITY [None]
  - ANGLE CLOSURE GLAUCOMA [None]
  - EYE PAIN [None]
